FAERS Safety Report 25710352 (Version 1)
Quarter: 2025Q3

REPORT INFORMATION
  Report Type: Spontaneous
  Country: US (occurrence: None)
  Receive Date: 20250821
  Receipt Date: 20250821
  Transmission Date: 20251021
  Serious: Yes (Hospitalization)
  Sender: FDA-CTU
  Company Number: None

PATIENT
  Age: 47 Year
  Sex: Female
  Weight: 92 kg

DRUGS (3)
  1. PEMBROLIZUMAB [Suspect]
     Active Substance: PEMBROLIZUMAB
     Dates: end: 20250403
  2. SULFAMETHOXAZOLE\TRIMETHOPRIM [Suspect]
     Active Substance: SULFAMETHOXAZOLE\TRIMETHOPRIM
  3. AMOXICILLIN [Suspect]
     Active Substance: AMOXICILLIN

REACTIONS (18)
  - Chromaturia [None]
  - Abdominal pain [None]
  - Malaise [None]
  - Urinary tract infection [None]
  - Triple negative breast cancer [None]
  - Hepatic lesion [None]
  - Metastases to bone [None]
  - Metastases to liver [None]
  - Biliary dilatation [None]
  - Cholangitis sclerosing [None]
  - Hepatic function abnormal [None]
  - Confusional state [None]
  - Pain in extremity [None]
  - Peripheral swelling [None]
  - Decreased appetite [None]
  - Peripancreatic fluid collection [None]
  - Pancreatitis [None]
  - Drug-induced liver injury [None]

NARRATIVE: CASE EVENT DATE: 20250717
